FAERS Safety Report 5319757-0 (Version None)
Quarter: 2007Q2

REPORT INFORMATION
  Report Type: 
  Country: None (occurrence: None)
  Receive Date: 20070503
  Receipt Date: 20070423
  Transmission Date: 20071010
  Serious: Yes (Other)
  Sender: FDA-Public Use
  Company Number: CTI_00912_2007

PATIENT
  Sex: Female
  Weight: 65.5 kg

DRUGS (5)
  1. ZYFLO 600 MG [Suspect]
     Indication: NASAL POLYPS
     Dosage: 600 MG  1X/4 DAYS ORAL
     Route: 048
     Dates: start: 20070402, end: 20070419
  2. ZYFLO 600 MG [Suspect]
     Indication: SINUSITIS
     Dosage: 600 MG  1X/4 DAYS ORAL
     Route: 048
     Dates: start: 20070402, end: 20070419
  3. FLOVENT [Concomitant]
  4. ZYRTEC [Concomitant]
  5. ADVAIR DISKUS 100/50 [Concomitant]

REACTIONS (10)
  - ALANINE AMINOTRANSFERASE INCREASED [None]
  - ASPARTATE AMINOTRANSFERASE INCREASED [None]
  - BLEPHAROSPASM [None]
  - BLOOD ALKALINE PHOSPHATASE INCREASED [None]
  - CHROMATURIA [None]
  - HEPATIC ENZYME INCREASED [None]
  - INFLUENZA LIKE ILLNESS [None]
  - MUSCLE TWITCHING [None]
  - NAUSEA [None]
  - SINUSITIS [None]
